FAERS Safety Report 9389691 (Version 1)
Quarter: 2013Q3

REPORT INFORMATION
  Report Type: Spontaneous
  Country: US (occurrence: US)
  Receive Date: 20130708
  Receipt Date: 20130708
  Transmission Date: 20140515
  Serious: No
  Sender: FDA-Public Use
  Company Number: US-AMGEN-USASP2013041026

PATIENT
  Age: 78 Year
  Sex: Male
  Weight: 106 kg

DRUGS (9)
  1. ENBREL [Suspect]
     Indication: RHEUMATOID ARTHRITIS
     Dosage: 50 MG, 2 TIMES/WK
     Route: 058
     Dates: start: 20061102
  2. NAPROXEN [Concomitant]
     Dosage: UNK
  3. ACYCLOVIR                          /00587301/ [Concomitant]
     Dosage: 400 UNK, UNK
     Route: 048
  4. COSOPT [Concomitant]
     Dosage: UNK
  5. FOLIC ACID [Concomitant]
     Dosage: UNK
  6. LOSARTAN [Concomitant]
     Dosage: 100 UNK, UNK
     Route: 048
  7. SEROQUEL [Concomitant]
     Dosage: 7.5 UNK, UNK
     Route: 048
  8. SONATA                             /00061001/ [Concomitant]
     Dosage: 10 MG, UNK
  9. AMBIEN [Concomitant]
     Dosage: 6.25 UNK, UNK
     Route: 048

REACTIONS (11)
  - Balance disorder [Recovered/Resolved]
  - Fall [Recovering/Resolving]
  - Weight bearing difficulty [Not Recovered/Not Resolved]
  - Dizziness [Recovering/Resolving]
  - Gait disturbance [Not Recovered/Not Resolved]
  - Walking aid user [Not Recovered/Not Resolved]
  - Muscular weakness [Unknown]
  - Nerve injury [Unknown]
  - Muscle injury [Unknown]
  - Pollakiuria [Unknown]
  - Sleep apnoea syndrome [Unknown]
